FAERS Safety Report 7971409-4 (Version None)
Quarter: 2011Q4

REPORT INFORMATION
  Report Type: 
  Country: None (occurrence: None)
  Receive Date: 20111212
  Receipt Date: 20111209
  Transmission Date: 20120403
  Serious: Yes (Life-Threatening, Hospitalization, Other)
  Sender: FDA-Public Use
  Company Number: JP-ABBOTT-11P-087-0705786-00

PATIENT
  Sex: Female
  Weight: 52 kg

DRUGS (6)
  1. TACROLIMUS [Concomitant]
     Indication: RHEUMATOID ARTHRITIS
     Route: 048
  2. HUMIRA [Suspect]
     Dates: start: 20100722, end: 20110202
  3. HUMIRA [Suspect]
     Indication: RHEUMATOID ARTHRITIS
     Route: 058
     Dates: start: 20100423, end: 20100616
  4. METHOTREXATE [Concomitant]
     Indication: RHEUMATOID ARTHRITIS
     Route: 048
  5. STEROID [Concomitant]
     Indication: PRODUCT USED FOR UNKNOWN INDICATION
     Route: 048
  6. PREDNISOLONE [Concomitant]
     Indication: RHEUMATOID ARTHRITIS

REACTIONS (8)
  - ARTHRALGIA [None]
  - ADRENOCORTICAL INSUFFICIENCY ACUTE [None]
  - POSTOPERATIVE WOUND INFECTION [None]
  - PYREXIA [None]
  - BLOOD PRESSURE DECREASED [None]
  - HIP ARTHROPLASTY [None]
  - SEPTIC SHOCK [None]
  - INFECTION [None]
